FAERS Safety Report 21546372 (Version 3)
Quarter: 2023Q1

REPORT INFORMATION
  Report Type: Spontaneous
  Country: US (occurrence: US)
  Receive Date: 20221103
  Receipt Date: 20230303
  Transmission Date: 20230417
  Serious: Yes (Other)
  Sender: FDA-Public Use
  Company Number: US-AMGEN-USASP2022185832

PATIENT
  Age: 62 Year
  Sex: Female
  Weight: 83.91 kg

DRUGS (17)
  1. REPATHA [Suspect]
     Active Substance: EVOLOCUMAB
     Indication: Blood cholesterol abnormal
     Dosage: UNK, Q2WK
     Route: 058
     Dates: start: 2021
  2. REPATHA [Suspect]
     Active Substance: EVOLOCUMAB
     Indication: Type V hyperlipidaemia
  3. OZEMPIC [Concomitant]
     Active Substance: SEMAGLUTIDE
     Dosage: 1 MILLIGRAM, QWK
     Route: 058
  4. PRAMIPEXOLE [Concomitant]
     Active Substance: PRAMIPEXOLE
     Indication: Restless legs syndrome
     Dosage: 0.75 MILLIGRAM, QD
  5. TRAZODONE [Concomitant]
     Active Substance: TRAZODONE HYDROCHLORIDE
     Indication: Insomnia
     Dosage: 50 MILLIGRAM, 1 TO 2 TABLEST BY MOUTH AT BEDTIME
  6. ASPIRIN [Concomitant]
     Active Substance: ASPIRIN
     Dosage: 81 MILLIGRAM, QD
     Route: 048
     Dates: start: 20220506
  7. EZETIMIBE [Concomitant]
     Active Substance: EZETIMIBE
     Dosage: 10 MILLIGRAM, QD
     Route: 048
  8. GLIPIZIDE [Concomitant]
     Active Substance: GLIPIZIDE
     Dosage: 5 MILLIGRAM
  9. ROSUVASTATIN [Concomitant]
     Active Substance: ROSUVASTATIN
     Dosage: 10 MILLIGRAM
  10. TRETINOIN [Concomitant]
     Active Substance: TRETINOIN
     Dosage: UNK
  11. Black currant oil [Concomitant]
     Dosage: 1000 MILLIGRAM
  12. IODINE [Concomitant]
     Active Substance: IODINE
     Dosage: 12.5 MILLIGRAM
  13. MAGNESIUM [Concomitant]
     Active Substance: MAGNESIUM
     Dosage: UNK
  14. FISH OIL [Concomitant]
     Active Substance: FISH OIL
     Dosage: 1400 MILLIGRAM
  15. LIPOSOMAL VITAMIN C [Concomitant]
     Dosage: 1600 MILLIGRAM
  16. INFLUENZA VIRUS VACCINE [Concomitant]
     Active Substance: INFLUENZA VIRUS VACCINE
     Dosage: UNK
     Dates: start: 20181018
  17. ZETIA [Concomitant]
     Active Substance: EZETIMIBE
     Dosage: 10 MILLIGRAM

REACTIONS (15)
  - Arteriosclerosis coronary artery [Unknown]
  - Type 2 diabetes mellitus [Unknown]
  - Dyspepsia [Unknown]
  - Vomiting [Unknown]
  - Cervical radiculopathy [Unknown]
  - Chest pain [Unknown]
  - Somnolence [Unknown]
  - Pulmonary mass [Unknown]
  - COVID-19 [Unknown]
  - Limb operation [Unknown]
  - Obstructive sleep apnoea syndrome [Unknown]
  - Obesity [Unknown]
  - Hypertension [Unknown]
  - Diarrhoea [Unknown]
  - Myalgia [Unknown]

NARRATIVE: CASE EVENT DATE: 20211101
